FAERS Safety Report 10016428 (Version 1)
Quarter: 2014Q1

REPORT INFORMATION
  Report Type: Spontaneous
  Country: PL (occurrence: PL)
  Receive Date: 20140317
  Receipt Date: 20140317
  Transmission Date: 20141002
  Serious: Yes (Death, Hospitalization)
  Sender: FDA-Public Use
  Company Number: PL-MYLANLABS-2014S1005269

PATIENT
  Age: 19 Year
  Sex: Male

DRUGS (5)
  1. RIFAMPICIN [Suspect]
     Indication: INTENTIONAL OVERDOSE
     Dosage: ^THE HIGHER AMOUNT^
     Route: 048
  2. ISONIAZID [Suspect]
     Indication: INTENTIONAL OVERDOSE
     Dosage: ^THE HIGHER AMOUNT^
     Route: 048
  3. PYRAZINAMIDE [Suspect]
     Indication: INTENTIONAL OVERDOSE
     Dosage: ^THE HIGHER AMOUNT^
     Route: 048
  4. KETOPROFEN [Suspect]
     Indication: INTENTIONAL OVERDOSE
     Dosage: ^THE HIGHER AMOUNT^
     Route: 048
  5. KETOPROFEN [Suspect]
     Indication: OFF LABEL USE
     Dosage: ^THE HIGHER AMOUNT^
     Route: 048

REACTIONS (21)
  - Intentional overdose [Fatal]
  - Toxicity to various agents [Fatal]
  - Completed suicide [Fatal]
  - Cardiogenic shock [Fatal]
  - Pulmonary oedema [Fatal]
  - Cardiomyopathy acute [Fatal]
  - Cardiac arrest [Fatal]
  - Acute coronary syndrome [Unknown]
  - Hypotension [Unknown]
  - Myocardial infarction [Unknown]
  - Nausea [Unknown]
  - Vomiting [Unknown]
  - Respiratory alkalosis [Unknown]
  - Hypokalaemia [Unknown]
  - Metabolic acidosis [Unknown]
  - Red man syndrome [Unknown]
  - Pruritus [Unknown]
  - Hyperhidrosis [Unknown]
  - Tremor [Unknown]
  - Dyspnoea [Unknown]
  - Somnolence [Unknown]
